FAERS Safety Report 19887957 (Version 4)
Quarter: 2021Q4

REPORT INFORMATION
  Report Type: Report from Study
  Country: US (occurrence: US)
  Receive Date: 20210927
  Receipt Date: 20211019
  Transmission Date: 20220303
  Serious: Yes (Other)
  Sender: FDA-Public Use
  Company Number: US-GLAXOSMITHKLINE-US2021201263

PATIENT
  Age: 65 Year
  Sex: Female
  Weight: 65.76 kg

DRUGS (2)
  1. NIRAPARIB [Suspect]
     Active Substance: NIRAPARIB
     Indication: Ovarian cancer
     Dosage: 200 MG, QD (200MG AT MIDNIGHT, MOSTLY WITHOUT FOOD)
     Route: 048
     Dates: start: 20210917
  2. NIRAPARIB [Suspect]
     Active Substance: NIRAPARIB
     Dosage: 200 MG, QD, AT MIDNIGHT, MOSTLY WITHOUT FOOD
     Route: 048
     Dates: end: 20211011

REACTIONS (17)
  - Metastases to abdominal cavity [Not Recovered/Not Resolved]
  - Haemorrhage [Unknown]
  - Insomnia [Not Recovered/Not Resolved]
  - Fluid retention [Not Recovered/Not Resolved]
  - Tremor [Not Recovered/Not Resolved]
  - Blood pressure increased [Not Recovered/Not Resolved]
  - Nausea [Unknown]
  - Constipation [Not Recovered/Not Resolved]
  - Platelet count decreased [Not Recovered/Not Resolved]
  - Petechiae [Unknown]
  - Vaginal haemorrhage [Unknown]
  - Stomatitis [Not Recovered/Not Resolved]
  - Mouth haemorrhage [Unknown]
  - Glossodynia [Not Recovered/Not Resolved]
  - Tongue haemorrhage [Unknown]
  - Blood urine present [Unknown]
  - Contusion [Not Recovered/Not Resolved]

NARRATIVE: CASE EVENT DATE: 20211011
